FAERS Safety Report 4620079-1 (Version None)
Quarter: 2005Q1

REPORT INFORMATION
  Report Type: 
  Country: None (occurrence: None)
  Receive Date: 20050321
  Receipt Date: 20050321
  Transmission Date: 20050727
  Serious: Yes (Other)
  Sender: FDA-Public Use
  Company Number: None

PATIENT
  Age: 47 Year
  Sex: Female

DRUGS (4)
  1. ZESTRIL [Suspect]
     Indication: HYPERTENSION
     Dosage: 10 MG DAILY PO
     Route: 048
     Dates: start: 20041021, end: 20050117
  2. ZYBAN [Concomitant]
  3. NICODERM [Concomitant]
  4. NICORETTE [Concomitant]

REACTIONS (2)
  - ANGIONEUROTIC OEDEMA [None]
  - RASH PRURITIC [None]
